FAERS Safety Report 23899082 (Version 1)
Quarter: 2024Q2

REPORT INFORMATION
  Report Type: Spontaneous
  Country: US (occurrence: None)
  Receive Date: 20240526
  Receipt Date: 20240526
  Transmission Date: 20240716
  Serious: No
  Sender: FDA-Public Use
  Company Number: 2024A113334

PATIENT

DRUGS (1)
  1. ANDEXXA [Suspect]
     Active Substance: ANDEXANET ALFA
     Indication: Haemorrhage
     Dosage: 800.0MG UNKNOWN
     Route: 040

REACTIONS (3)
  - Mental status changes [Unknown]
  - Product use issue [Unknown]
  - Wrong technique in product usage process [Unknown]
